FAERS Safety Report 6772998-8 (Version None)
Quarter: 2010Q2

REPORT INFORMATION
  Report Type: 
  Country: None (occurrence: None)
  Receive Date: 20100616
  Receipt Date: 20100604
  Transmission Date: 20101027
  Serious: Yes (Other)
  Sender: FDA-Public Use
  Company Number: CA-PFIZER INC-2010070877

PATIENT

DRUGS (1)
  1. CHAMPIX [Suspect]

REACTIONS (2)
  - ARTHROPATHY [None]
  - DERMATITIS [None]
